FAERS Safety Report 16830197 (Version 1)
Quarter: 2019Q3

REPORT INFORMATION
  Report Type: Spontaneous
  Country: IL (occurrence: IL)
  Receive Date: 20190919
  Receipt Date: 20190919
  Transmission Date: 20191005
  Serious: Yes (Life-Threatening)
  Sender: FDA-Public Use
  Company Number: PHHY2019IL217799

PATIENT
  Sex: Female

DRUGS (1)
  1. KYMRIAH [Suspect]
     Active Substance: TISAGENLECLEUCEL
     Indication: DIFFUSE LARGE B-CELL LYMPHOMA
     Dosage: UNK
     Route: 042

REACTIONS (6)
  - Respiratory disorder [Recovering/Resolving]
  - Cerebrovascular accident [Recovering/Resolving]
  - Cytokine release syndrome [Recovering/Resolving]
  - Serum ferritin increased [Recovering/Resolving]
  - Renal failure [Recovering/Resolving]
  - Blood fibrinogen decreased [Recovering/Resolving]
